FAERS Safety Report 24051004 (Version 1)
Quarter: 2024Q3

REPORT INFORMATION
  Report Type: Spontaneous
  Country: US (occurrence: US)
  Receive Date: 20240704
  Receipt Date: 20240704
  Transmission Date: 20241016
  Serious: No
  Sender: ABBVIE
  Company Number: US-ABBVIE-5824489

PATIENT
  Age: 38 Year
  Sex: Male

DRUGS (3)
  1. SKYRIZI [Suspect]
     Active Substance: RISANKIZUMAB-RZAA
     Indication: Crohn^s disease
     Dosage: FIRST DOSE
     Route: 042
     Dates: start: 20240419, end: 20240419
  2. SKYRIZI [Suspect]
     Active Substance: RISANKIZUMAB-RZAA
     Indication: Crohn^s disease
     Dosage: SECOND DOSE
     Route: 042
     Dates: start: 20240516, end: 20240516
  3. SKYRIZI [Suspect]
     Active Substance: RISANKIZUMAB-RZAA
     Indication: Crohn^s disease
     Dosage: THIRD DOSE
     Route: 042
     Dates: start: 20240612

REACTIONS (1)
  - Eosinophilic fasciitis [Recovered/Resolved]

NARRATIVE: CASE EVENT DATE: 20240419
